FAERS Safety Report 6183313-5 (Version None)
Quarter: 2009Q2

REPORT INFORMATION
  Report Type: 
  Country: None (occurrence: None)
  Receive Date: 20090506
  Receipt Date: 20090422
  Transmission Date: 20091009
  Serious: Yes (Hospitalization)
  Sender: FDA-Public Use
  Company Number: 1000006061

PATIENT
  Age: 44 Year
  Sex: Male

DRUGS (4)
  1. ESCITALOPRAM [Suspect]
     Dosage: 10 MG (10 MG, 1 IN 1 D), ORAL
     Route: 048
     Dates: start: 20081201, end: 20090221
  2. LEXOMIL (TABLETS) [Concomitant]
  3. CARTREX [Concomitant]
  4. OMEPRAZOLE [Concomitant]

REACTIONS (4)
  - AMNESIA [None]
  - CONVULSION [None]
  - GRAND MAL CONVULSION [None]
  - MALAISE [None]
